FAERS Safety Report 5707109-0 (Version None)
Quarter: 2008Q2

REPORT INFORMATION
  Report Type: 
  Country: None (occurrence: None)
  Receive Date: 20080416
  Receipt Date: 20080404
  Transmission Date: 20081010
  Serious: Yes (Hospitalization, Other)
  Sender: FDA-Public Use
  Company Number: US-ELI_LILLY_AND_COMPANY-US200804001278

PATIENT
  Sex: Female

DRUGS (7)
  1. FORTEO [Suspect]
     Indication: OSTEOPOROSIS
     Dates: start: 20070401, end: 20080101
  2. PULMICORT [Concomitant]
  3. DIGITEK [Concomitant]
  4. DUONEB [Concomitant]
  5. DILTIAZEM [Concomitant]
  6. FAMOTIDINE [Concomitant]
  7. ASPIRIN [Concomitant]

REACTIONS (6)
  - GAIT DISTURBANCE [None]
  - GENERALISED OEDEMA [None]
  - HAEMORRHAGE [None]
  - RESPIRATORY FAILURE [None]
  - SKIN DISORDER [None]
  - SKIN EXFOLIATION [None]
